FAERS Safety Report 24761467 (Version 1)
Quarter: 2024Q4

REPORT INFORMATION
  Report Type: Spontaneous
  Country: US (occurrence: US)
  Receive Date: 20241220
  Receipt Date: 20241220
  Transmission Date: 20250115
  Serious: Yes (Death, Hospitalization, Other)
  Sender: DR REDDYS
  Company Number: US-DRL-USA-LIT/USA/24/0018637

PATIENT
  Age: 53 Year
  Sex: Male

DRUGS (4)
  1. CYCLOSPORINE [Suspect]
     Active Substance: CYCLOSPORINE
     Indication: Autoimmune haemolytic anaemia
  2. RITUXIMAB [Suspect]
     Active Substance: RITUXIMAB
     Indication: Autoimmune haemolytic anaemia
     Dosage: WEEKLY X 4
     Dates: start: 20130905
  3. RITUXIMAB [Suspect]
     Active Substance: RITUXIMAB
     Dosage: WEEKLY X 4
  4. ALEMTUZUMAB [Suspect]
     Active Substance: ALEMTUZUMAB
     Indication: Autoimmune haemolytic anaemia
     Dosage: 3MG X 1 DAY THEN 10MG X 1 DAY THEN 30MG 3X/WEEKX 4 WEEKS
     Route: 042
     Dates: start: 20121230, end: 201301

REACTIONS (4)
  - Renal failure [Fatal]
  - Hepatic failure [Fatal]
  - Condition aggravated [Fatal]
  - Product use in unapproved indication [Unknown]
